FAERS Safety Report 4405168-9 (Version None)
Quarter: 2004Q3

REPORT INFORMATION
  Report Type: 
  Country: None (occurrence: None)
  Receive Date: 20040722
  Receipt Date: 20040722
  Transmission Date: 20050211
  Serious: No
  Sender: FDA-Public Use
  Company Number: None

PATIENT
  Sex: Male
  Weight: 69.4003 kg

DRUGS (4)
  1. VANCOMYCIN [Suspect]
     Indication: ABSCESS
     Dosage: 1.5 GM IV
     Route: 042
     Dates: start: 20040717
  2. VANCOMYCIN [Suspect]
     Indication: CARBUNCLE
     Dosage: 1.5 GM IV
     Route: 042
     Dates: start: 20040717
  3. VANCOMYCIN [Suspect]
     Indication: ABSCESS
     Dosage: 1.5 GM IV
     Route: 042
     Dates: start: 20040720
  4. VANCOMYCIN [Suspect]
     Indication: CARBUNCLE
     Dosage: 1.5 GM IV
     Route: 042
     Dates: start: 20040720

REACTIONS (1)
  - RASH PRURITIC [None]
